FAERS Safety Report 17393619 (Version 1)
Quarter: 2020Q1

REPORT INFORMATION
  Report Type: Spontaneous
  Country: DK (occurrence: DK)
  Receive Date: 20200208
  Receipt Date: 20200208
  Transmission Date: 20200409
  Serious: Yes (Death, Life-Threatening)
  Sender: FDA-Public Use
  Company Number: NVSC2020DK030360

PATIENT
  Age: 83 Year
  Sex: Male

DRUGS (1)
  1. CORDAN (AMIODARONE HYDROCHLORIDE) [Suspect]
     Active Substance: AMIODARONE HYDROCHLORIDE
     Indication: ATRIAL FIBRILLATION
     Dosage: DOSIS: VARIERENDE DOSER, STYRKE: 200 MG
     Route: 048
     Dates: start: 20170419, end: 201812

REACTIONS (11)
  - Thyrotoxic crisis [Fatal]
  - Gastrooesophageal sphincter insufficiency [Unknown]
  - Pneumonia [Unknown]
  - Electrocardiogram QT prolonged [Unknown]
  - Hyperthyroidism [Fatal]
  - Depressed level of consciousness [Unknown]
  - Malnutrition [Unknown]
  - Thyroiditis [Fatal]
  - Dehydration [Unknown]
  - General physical health deterioration [Unknown]
  - Diarrhoea [Unknown]

NARRATIVE: CASE EVENT DATE: 2018
